FAERS Safety Report 8359912-9 (Version None)
Quarter: 2012Q2

REPORT INFORMATION
  Report Type: 
  Country: None (occurrence: None)
  Receive Date: 20120515
  Receipt Date: 20120508
  Transmission Date: 20120825
  Serious: Yes (Disabling, Other)
  Sender: FDA-Public Use
  Company Number: US-PFIZER INC-2012112490

PATIENT
  Sex: Female
  Weight: 53.06 kg

DRUGS (11)
  1. REVATIO [Suspect]
     Indication: PULMONARY HYPERTENSION
     Dosage: 20 MG, 3X/DAY
     Route: 048
  2. NEURONTIN [Concomitant]
     Dosage: 300 MG, 3X/DAY
  3. VITAMIN D [Concomitant]
     Dosage: 50000 UNITS, WEEKLY
  4. SINGULAIR [Concomitant]
     Dosage: 10 MG, 1X/DAY
  5. POTASSIUM [Concomitant]
     Dosage: 10 MEQ, 3X/DAY
  6. SODIUM CHLORIDE [Concomitant]
     Dosage: UNK
  7. SYMBICORT [Concomitant]
     Dosage: TWO PUFFS, AS NEEDED
  8. NORVASC [Concomitant]
     Dosage: 5 MG, 1X/DAY
  9. SPIRONOLACTONE [Concomitant]
     Dosage: 25 MG, 1X/DAY
  10. FLOLAN [Concomitant]
     Dosage: UNK
  11. ADVAIR DISKUS 100/50 [Concomitant]
     Dosage: UNK, 1X/DAY

REACTIONS (2)
  - PULMONARY HYPERTENSION [None]
  - NEUROPATHY PERIPHERAL [None]
